FAERS Safety Report 12597095 (Version 1)
Quarter: 2016Q3

REPORT INFORMATION
  Report Type: Spontaneous
  Country: US (occurrence: None)
  Receive Date: 20160726
  Receipt Date: 20160726
  Transmission Date: 20161109
  Serious: No
  Sender: FDA-Public Use
  Company Number: None

PATIENT
  Sex: Female

DRUGS (3)
  1. VICTOZA [Concomitant]
     Active Substance: LIRAGLUTIDE
  2. LEVOPHED [Concomitant]
     Active Substance: NOREPINEPHRINE BITARTRATE
  3. METFORMIN [Suspect]
     Active Substance: METFORMIN HYDROCHLORIDE

REACTIONS (7)
  - Coma [None]
  - Thermal burn [None]
  - Body temperature decreased [None]
  - Nausea [None]
  - Poisoning [None]
  - Apparent death [None]
  - Weight decreased [None]
